FAERS Safety Report 15607353 (Version 5)
Quarter: 2019Q2

REPORT INFORMATION
  Report Type: Report from Study
  Country: US (occurrence: US)
  Receive Date: 20181112
  Receipt Date: 20190403
  Transmission Date: 20190711
  Serious: Yes (Other)
  Sender: FDA-Public Use
  Company Number: US-MALLINCKRODT-T201804828

PATIENT
  Sex: Female

DRUGS (4)
  1. REPOSITORY CORTICOTROPIN INJECTION [Suspect]
     Active Substance: CORTICOTROPIN
     Indication: PSORIATIC ARTHROPATHY
     Dosage: 80 UNITS/1 ML  2 TIMES PER WEEK SUNDAY/WEDNESDAY
     Route: 058
     Dates: start: 20180729, end: 2018
  2. REPOSITORY CORTICOTROPIN INJECTION [Suspect]
     Active Substance: CORTICOTROPIN
     Dosage: 80 UNITS / 1 ML, 2 TIMES PER WEEK SUNDAY/WEDNESDAY
     Route: 058
  3. REPOSITORY CORTICOTROPIN INJECTION [Suspect]
     Active Substance: CORTICOTROPIN
     Dosage: 80 UNITS / 1 ML, 2 TIMES PER WEEK SUNDAY/WEDNESDAY
     Route: 058
     Dates: start: 2018
  4. ORENCIA [Concomitant]
     Active Substance: ABATACEPT
     Indication: PSORIASIS
     Dosage: 125 MG/ML WEEKLY
     Route: 065
     Dates: start: 201809

REACTIONS (5)
  - Immunosuppression [Unknown]
  - Weight abnormal [Unknown]
  - Osteopenia [Unknown]
  - Diabetes mellitus [Recovering/Resolving]
  - Discomfort [Unknown]

NARRATIVE: CASE EVENT DATE: 2018
